FAERS Safety Report 9775216 (Version 3)
Quarter: 2014Q2

REPORT INFORMATION
  Report Type: Spontaneous
  Country: US (occurrence: US)
  Receive Date: 20131220
  Receipt Date: 20140403
  Transmission Date: 20141212
  Serious: Yes (Hospitalization, Other)
  Sender: FDA-Public Use
  Company Number: US-BEH-2012030789

PATIENT
  Age: 63 Year
  Sex: Female
  Weight: 85 kg

DRUGS (18)
  1. HIZENTRA [Suspect]
     Indication: BLOOD IMMUNOGLOBULIN G DECREASED
     Dosage: ??-SEP-2010
  2. FUROSEMIDE [Concomitant]
  3. OXYGEN [Concomitant]
  4. PREDNISONE [Concomitant]
  5. LEXAPRIL [Concomitant]
     Indication: DEPRESSION
  6. PREVACID [Concomitant]
     Indication: ASTHMA
  7. PREVACID [Concomitant]
     Indication: CHRONIC OBSTRUCTIVE PULMONARY DISEASE
  8. VENLAFAXINE [Concomitant]
     Indication: DEPRESSION
  9. POTASSIUM [Concomitant]
  10. METFORMIN [Concomitant]
     Indication: DIABETES MELLITUS
  11. GLYBURIDE [Concomitant]
     Indication: DIABETES MELLITUS
  12. METOPROLOL [Concomitant]
  13. FOLIC ACID [Concomitant]
  14. NORTRIPTYLINE [Concomitant]
     Indication: MIGRAINE
  15. ATORVASTATIN CALCIUM [Concomitant]
  16. ADVAIR [Concomitant]
     Indication: ASTHMA
  17. SPIRIVA [Concomitant]
     Indication: TOTAL LUNG CAPACITY ABNORMAL
  18. IMITREX [Concomitant]
     Indication: MIGRAINE

REACTIONS (26)
  - Mania [Unknown]
  - Mobility decreased [Unknown]
  - Psychotic disorder [Unknown]
  - Loss of consciousness [Unknown]
  - Feeling abnormal [Not Recovered/Not Resolved]
  - Neck pain [Not Recovered/Not Resolved]
  - Musculoskeletal stiffness [Not Recovered/Not Resolved]
  - Migraine [Recovering/Resolving]
  - Hypersomnia [Recovering/Resolving]
  - Dry mouth [Not Recovered/Not Resolved]
  - Toothache [Not Recovered/Not Resolved]
  - Confusional state [Unknown]
  - Nausea [Unknown]
  - Fatigue [Not Recovered/Not Resolved]
  - Gastrointestinal disorder [Unknown]
  - Drug dose omission [Unknown]
  - Migraine [Not Recovered/Not Resolved]
  - Migraine [Unknown]
  - Neck pain [Unknown]
  - Heart rate increased [Unknown]
  - Pain [Unknown]
  - Unevaluable event [Unknown]
  - Syncope [Unknown]
  - Headache [Unknown]
  - Incoherent [Unknown]
  - Mania [Unknown]
